FAERS Safety Report 4282876-4 (Version None)
Quarter: 2004Q1

REPORT INFORMATION
  Report Type: 
  Country: None (occurrence: None)
  Receive Date: 20040130
  Receipt Date: 20030818
  Transmission Date: 20041129
  Serious: No
  Sender: FDA-Public Use
  Company Number: US-BRISTOL-MYERS SQUIBB COMPANY-12358883

PATIENT
  Age: 33 Year
  Sex: Female

DRUGS (3)
  1. SERZONE [Suspect]
     Indication: OBSESSIVE-COMPULSIVE DISORDER
     Dosage: BEGAN RX ON 12/17/02; DOSE INCREASED FROM 300MG TO 450MG QD ON 2/17/03.
     Route: 048
     Dates: start: 20021217, end: 20030724
  2. ALCOHOL [Suspect]
     Dosage: HEAVY USE
     Route: 048
  3. ZOLOFT [Concomitant]

REACTIONS (1)
  - HEPATIC ENZYME INCREASED [None]
